FAERS Safety Report 8486952-1 (Version None)
Quarter: 2012Q3

REPORT INFORMATION
  Report Type: 
  Country: None (occurrence: None)
  Receive Date: 20120704
  Receipt Date: 20120623
  Transmission Date: 20120928
  Serious: Yes (Hospitalization)
  Sender: FDA-Public Use
  Company Number: JP-AMGEN-JPNSP2012040102

PATIENT
  Age: 60 Year
  Sex: Male

DRUGS (9)
  1. OLMESARTAN MEDOXOMIL [Concomitant]
     Route: 048
  2. LASIX [Concomitant]
     Dosage: UNCERTAINTY
     Route: 048
  3. EQUA [Concomitant]
     Route: 048
  4. CINACALCET HYDROCHLORIDE [Suspect]
     Indication: HYPERPARATHYROIDISM SECONDARY
     Route: 048
     Dates: start: 20120608, end: 20120613
  5. PERSANTINE [Concomitant]
     Dosage: UNCERTAINTY
  6. DOXAZOSIN MESYLATE [Concomitant]
     Route: 048
  7. SENNOSIDE [Concomitant]
     Dosage: UNCERTAINTY
     Route: 048
  8. ALLOPURINOL [Concomitant]
     Route: 048
  9. ADALAT CC [Concomitant]
     Dosage: UNCERTAINTY
     Route: 048

REACTIONS (5)
  - INTERMITTENT CLAUDICATION [None]
  - TREMOR [None]
  - FEELING ABNORMAL [None]
  - EATING DISORDER [None]
  - PYREXIA [None]
